FAERS Safety Report 22590354 (Version 1)
Quarter: 2023Q2

REPORT INFORMATION
  Report Type: Spontaneous
  Country: US (occurrence: None)
  Receive Date: 20230609
  Receipt Date: 20230609
  Transmission Date: 20230721
  Serious: No
  Sender: FDA-Public Use
  Company Number: None

PATIENT
  Sex: Female

DRUGS (17)
  1. IBRANCE [Suspect]
     Active Substance: PALBOCICLIB
     Indication: Breast cancer female
     Dosage: OTHER QUANTITY : 1T;?FREQUENCY : DAILY;?
     Route: 048
  2. CLONAZEPAM [Concomitant]
     Active Substance: CLONAZEPAM
  3. TRAMADOL [Concomitant]
     Active Substance: TRAMADOL
  4. XGEVA [Concomitant]
     Active Substance: DENOSUMAB
  5. TYLENOL [Concomitant]
     Active Substance: ACETAMINOPHEN
  6. TAMOXIFEN [Concomitant]
     Active Substance: TAMOXIFEN
  7. LEVOTHYROXINE [Concomitant]
     Active Substance: LEVOTHYROXINE
  8. ONDANSETRON [Concomitant]
     Active Substance: ONDANSETRON
  9. AMLODIPINE [Concomitant]
     Active Substance: AMLODIPINE BESYLATE
  10. ATENOLOL [Concomitant]
     Active Substance: ATENOLOL
  11. RABEPRAZOLE [Concomitant]
     Active Substance: RABEPRAZOLE
  12. FULVESTRANT [Concomitant]
     Active Substance: FULVESTRANT
  13. MELATONIN [Concomitant]
     Active Substance: MELATONIN
  14. PROCHLORPERAZINE [Concomitant]
     Active Substance: PROCHLORPERAZINE
  15. VITAMIN B12 [Concomitant]
     Active Substance: CYANOCOBALAMIN
  16. CALCIUM [Concomitant]
     Active Substance: CALCIUM
  17. PANTOPRAZOLE [Concomitant]
     Active Substance: PANTOPRAZOLE

REACTIONS (1)
  - Surgery [None]
